FAERS Safety Report 21280578 (Version 1)
Quarter: 2022Q3

REPORT INFORMATION
  Report Type: Spontaneous
  Country: US (occurrence: US)
  Receive Date: 20220901
  Receipt Date: 20220901
  Transmission Date: 20221026
  Serious: No
  Sender: FDA-Public Use
  Company Number: US-ELI_LILLY_AND_COMPANY-US202209000062

PATIENT
  Age: 34 Year
  Sex: Female

DRUGS (2)
  1. EMGALITY [Suspect]
     Active Substance: GALCANEZUMAB-GNLM
     Indication: Product used for unknown indication
     Dosage: UNK UNK, UNKNOWN
     Route: 065
  2. LORATADINE [Concomitant]
     Active Substance: LORATADINE
     Indication: Product used for unknown indication

REACTIONS (4)
  - Throat irritation [Unknown]
  - Product dose omission issue [Unknown]
  - Hypersensitivity [Recovered/Resolved]
  - Pharyngeal swelling [Unknown]

NARRATIVE: CASE EVENT DATE: 20220830
